FAERS Safety Report 7600396-3 (Version None)
Quarter: 2011Q3

REPORT INFORMATION
  Report Type: 
  Country: None (occurrence: None)
  Receive Date: 20110711
  Receipt Date: 20110629
  Transmission Date: 20111222
  Serious: Yes (Hospitalization)
  Sender: FDA-Public Use
  Company Number: US-ELI_LILLY_AND_COMPANY-US201106004063

PATIENT
  Sex: Female

DRUGS (16)
  1. OSCAL [Concomitant]
  2. CELLCEPT [Concomitant]
  3. VALCYTE [Concomitant]
  4. ASPIRIN [Concomitant]
  5. FORTEO [Suspect]
     Dosage: 20 UG, QD
  6. PREDNISONE [Concomitant]
  7. PRAVASTATIN [Concomitant]
  8. SYNTHROID [Concomitant]
  9. BACTRIM [Concomitant]
  10. POSACONAZOLE [Concomitant]
  11. AMBIEN [Concomitant]
  12. SIROLIMUS [Concomitant]
  13. OMEPRAZOLE [Concomitant]
  14. FORTEO [Suspect]
     Indication: OSTEOPOROSIS
     Dosage: 20 UG, QD
     Dates: start: 20110608, end: 20110610
  15. FORTEO [Suspect]
     Dosage: 20 UG, QD
     Dates: start: 20110613
  16. STARLIX [Concomitant]

REACTIONS (5)
  - HOSPITALISATION [None]
  - BONE PAIN [None]
  - BACK PAIN [None]
  - INCORRECT STORAGE OF DRUG [None]
  - DRUG DOSE OMISSION [None]
